FAERS Safety Report 16936349 (Version 1)
Quarter: 2019Q4

REPORT INFORMATION
  Report Type: Spontaneous
  Country: GB (occurrence: GB)
  Receive Date: 20191018
  Receipt Date: 20191018
  Transmission Date: 20200122
  Serious: Yes (Hospitalization)
  Sender: FDA-Public Use
  Company Number: GB-MYLANLABS-2019M1097860

PATIENT
  Age: 70 Year
  Sex: Male

DRUGS (9)
  1. TERBUTALINE [Concomitant]
     Active Substance: TERBUTALINE
     Dosage: (NEBULE) 5MG/2ML NEBULISER LIQUID UNIT DOSE VIALS
     Route: 055
  2. SALBUTAMOL [Concomitant]
     Active Substance: ALBUTEROL
     Dosage: 1-2 PUFFS FOUR TIMES PER DAY 100 MICROGRAMS/DOSE INHALER
     Route: 055
  3. WARFARIN [Concomitant]
     Active Substance: WARFARIN
     Dosage: 1 MILLIGRAM, QD
     Route: 048
  4. IPRATROPIUM BROMIDE. [Concomitant]
     Active Substance: IPRATROPIUM BROMIDE
     Dosage: 1 DOSAGE FORM (1 NEBULE 3-4 TIMES A DAY)
     Route: 050
  5. AMIODARONE [Suspect]
     Active Substance: AMIODARONE
     Indication: PRODUCT USED FOR UNKNOWN INDICATION
     Dosage: 100 MILLIGRAM, QD
     Route: 048
     Dates: end: 20190508
  6. BUMETANIDE. [Concomitant]
     Active Substance: BUMETANIDE
     Dosage: 6 MILLIGRAM, QD
     Route: 048
  7. CARBOCISTEINE [Concomitant]
     Active Substance: CARBOCYSTEINE
     Dosage: 1500 MILLIGRAM, QD
     Route: 048
  8. FLUTICASONE PROPIONATE W/SALMETEROL [Concomitant]
     Active Substance: FLUTICASONE PROPIONATE\SALMETEROL XINAFOATE
     Dosage: 2 DOSAGE FORM, QD
     Route: 055
  9. ATORVASTATIN [Concomitant]
     Active Substance: ATORVASTATIN
     Dosage: 20 MILLIGRAM, QD
     Route: 048

REACTIONS (3)
  - Tachycardia [Recovered/Resolved]
  - Hyperthyroidism [Recovered/Resolved]
  - Dyspnoea [Unknown]

NARRATIVE: CASE EVENT DATE: 20190730
